FAERS Safety Report 5022781-9 (Version None)
Quarter: 2006Q2

REPORT INFORMATION
  Report Type: 
  Country: None (occurrence: None)
  Receive Date: 20060609
  Receipt Date: 20060530
  Transmission Date: 20061013
  Serious: Yes (Hospitalization)
  Sender: FDA-Public Use
  Company Number: US-MERCK-0605USA05176

PATIENT
  Age: 74 Year
  Sex: Female

DRUGS (5)
  1. FOSAMAX [Suspect]
     Indication: OSTEOPENIA
     Route: 048
     Dates: start: 20060327, end: 20060511
  2. FOSAMAX [Suspect]
     Route: 048
     Dates: start: 20020101
  3. FOSAMAX [Suspect]
     Route: 048
     Dates: end: 20060301
  4. METFORMIN [Concomitant]
     Route: 065
     Dates: end: 20060301
  5. CRESTOR [Concomitant]
     Route: 065
     Dates: end: 20060301

REACTIONS (4)
  - DYSPEPSIA [None]
  - DYSPNOEA [None]
  - RHINITIS ALLERGIC [None]
  - SINUSITIS [None]
